FAERS Safety Report 20470555 (Version 1)
Quarter: 2022Q1

REPORT INFORMATION
  Report Type: Spontaneous
  Country: US (occurrence: None)
  Receive Date: 20220211
  Receipt Date: 20220211
  Transmission Date: 20220423
  Serious: Yes (Hospitalization)
  Sender: FDA-Public Use
  Company Number: None

PATIENT
  Sex: Male

DRUGS (1)
  1. OCTREOTIDE [Suspect]
     Active Substance: OCTREOTIDE
     Dosage: OTHER STRENGTH : 100 UG/ML;?FREQUENCY : 3 TIMES A DAY;?
     Route: 058
     Dates: start: 202112

REACTIONS (1)
  - Hospitalisation [None]
